FAERS Safety Report 5247187-9 (Version None)
Quarter: 2007Q1

REPORT INFORMATION
  Report Type: 
  Country: None (occurrence: None)
  Receive Date: 20070221
  Receipt Date: 20070209
  Transmission Date: 20070707
  Serious: Yes (Hospitalization)
  Sender: FDA-Public Use
  Company Number: 231093K07USA

PATIENT
  Age: 63 Year
  Sex: Female

DRUGS (2)
  1. REBIF [Suspect]
     Indication: MULTIPLE SCLEROSIS
     Dosage: 44 MCG, 3 IN 1 WEEKS, SUBCUTANEOUS
     Route: 058
     Dates: start: 20060828, end: 20070101
  2. UNSPECIFIED CONCOMITANT MEDICATIONS (ALL OTHER THERAPEUTIC PRODUCTS) [Concomitant]

REACTIONS (10)
  - ARTHROPATHY [None]
  - ELECTROCARDIOGRAM CHANGE [None]
  - INCOHERENT [None]
  - MYOCARDIAL INFARCTION [None]
  - NEUTROPENIA [None]
  - PNEUMONIA [None]
  - SHOCK [None]
  - STAPHYLOCOCCAL INFECTION [None]
  - THROMBOSIS [None]
  - URINARY TRACT INFECTION STAPHYLOCOCCAL [None]
